FAERS Safety Report 6250708-0 (Version None)
Quarter: 2009Q2

REPORT INFORMATION
  Report Type: 
  Country: None (occurrence: None)
  Receive Date: 20090626
  Receipt Date: 20090602
  Transmission Date: 20091009
  Serious: Yes (Hospitalization)
  Sender: FDA-Public Use
  Company Number: ADR2202009

PATIENT
  Age: 60 Year
  Sex: Male

DRUGS (18)
  1. CIPROFLAXACIN [Suspect]
     Indication: TRACHEOBRONCHITIS
     Dosage: 500 MG BID ORAL
     Route: 048
     Dates: start: 20090310, end: 20090320
  2. COTRIMHEXAL FORTE TABLETS (SULFAMETHOXAZOLE TRIMETHOPRIM) [Concomitant]
  3. TAZOBAC IV (PIPERACILLIN AND TAZOBACTAM) [Concomitant]
  4. ZITHROMAX [Concomitant]
  5. CELLCEPT [Concomitant]
  6. PREDNISOLONE [Concomitant]
  7. DURAGESIC-100 [Concomitant]
  8. FALHITHROM HEXAL (PHENPROCOUMON) [Concomitant]
  9. GABAPENTIN [Concomitant]
  10. FLUVASTATIN SODIUM [Concomitant]
  11. MAGNESIOCARD/GFR/ (MAGNESIUM ASPARTATE HYDROCHLORIDE) [Concomitant]
  12. NOVALGIN /SCH (METAMIZOLE SODIUM MONOHYDRATE) [Concomitant]
  13. PANTOPRAZOLE SODIUM [Concomitant]
  14. RAPAMUNE [Concomitant]
  15. SPRIVA   (TIOTROPIUM BROMIDE) INHALATION POWDER [Concomitant]
  16. TORASEMIDE [Concomitant]
  17. VIAGRA [Concomitant]
  18. VITAMIN D3 (CHOLECALCIFEROL) CHEWABLE TABLETS [Concomitant]

REACTIONS (1)
  - GASTROENTERITIS CLOSTRIDIAL [None]
